FAERS Safety Report 13093421 (Version 1)
Quarter: 2017Q1

REPORT INFORMATION
  Report Type: Spontaneous
  Country: US (occurrence: US)
  Receive Date: 20170106
  Receipt Date: 20170106
  Transmission Date: 20170428
  Serious: No
  Sender: FDA-Public Use
  Company Number: US-GLAXOSMITHKLINE-US2017001038

PATIENT
  Sex: Female

DRUGS (1)
  1. ALLI [Suspect]
     Active Substance: ORLISTAT
     Indication: PRODUCT USED FOR UNKNOWN INDICATION
     Dosage: UNK

REACTIONS (5)
  - Flank pain [Recovered/Resolved]
  - Pyrexia [Recovered/Resolved]
  - Abdominal pain upper [Recovered/Resolved]
  - Chills [Recovered/Resolved]
  - Liver disorder [Recovered/Resolved]
